FAERS Safety Report 11988062 (Version 1)
Quarter: 2016Q1

REPORT INFORMATION
  Report Type: Spontaneous
  Country: US (occurrence: None)
  Receive Date: 20160201
  Receipt Date: 20160201
  Transmission Date: 20160526
  Serious: Yes (Hospitalization)
  Sender: FDA-Public Use
  Company Number: None

PATIENT
  Age: 26 Year
  Sex: Female
  Weight: 66.68 kg

DRUGS (4)
  1. ONE A DAY [Concomitant]
  2. NEXPLANON [Concomitant]
     Active Substance: ETONOGESTREL
  3. NEXPLANON [Suspect]
     Active Substance: ETONOGESTREL
     Indication: CONTRACEPTION
     Dosage: REPLACE EVERY 3 YRS GIVEN INTO/UNDER THE SKIN
     Dates: start: 20150707
  4. LORATIDINE [Concomitant]
     Active Substance: LORATADINE

REACTIONS (1)
  - Ovarian cyst [None]

NARRATIVE: CASE EVENT DATE: 20160127
